FAERS Safety Report 24283525 (Version 7)
Quarter: 2025Q1

REPORT INFORMATION
  Report Type: Report from Study
  Country: US (occurrence: US)
  Receive Date: 20240904
  Receipt Date: 20250327
  Transmission Date: 20250409
  Serious: No
  Sender: SUNOVION
  Company Number: US-SUMITOMO PHARMA SWITZERLAND GMBH-2024SPA001234

PATIENT

DRUGS (7)
  1. ORGOVYX [Suspect]
     Active Substance: RELUGOLIX
     Indication: Prostate cancer
     Dosage: 120 MG, QD
     Route: 048
     Dates: start: 20240612
  2. WEGOVY [Suspect]
     Active Substance: SEMAGLUTIDE
     Indication: Weight decreased
     Route: 065
  3. VICODIN [Suspect]
     Active Substance: ACETAMINOPHEN\HYDROCODONE BITARTRATE
     Route: 065
  4. OXYCONTIN [Suspect]
     Active Substance: OXYCODONE HYDROCHLORIDE
     Route: 065
  5. LIPITOR [Suspect]
     Active Substance: ATORVASTATIN CALCIUM
     Route: 065
  6. AMIODARONE [Concomitant]
     Active Substance: AMIODARONE
     Dosage: 100 MG, QOD
     Route: 065
  7. CRESTOR [Concomitant]
     Active Substance: ROSUVASTATIN CALCIUM
     Route: 065

REACTIONS (15)
  - Cardiac ablation [Unknown]
  - Stent placement [Unknown]
  - Illness [Unknown]
  - Weight decreased [Unknown]
  - Blood testosterone decreased [Unknown]
  - Irritability [Unknown]
  - Laboratory test abnormal [Unknown]
  - Mood swings [Unknown]
  - Nocturia [Unknown]
  - Irritability [Unknown]
  - Back pain [Unknown]
  - Hot flush [Unknown]
  - Fatigue [Unknown]
  - Insomnia [Unknown]
  - Incorrect dose administered [Unknown]
